FAERS Safety Report 5081587-5 (Version None)
Quarter: 2006Q3

REPORT INFORMATION
  Report Type: 
  Country: None (occurrence: None)
  Receive Date: 20060811
  Receipt Date: 20060728
  Transmission Date: 20061208
  Serious: Yes (Hospitalization)
  Sender: FDA-Public Use
  Company Number: 2006PV018408

PATIENT
  Age: 75 Year
  Sex: Female
  Weight: 71.6683 kg

DRUGS (5)
  1. SYMLIN [Suspect]
     Indication: DIABETES MELLITUS INSULIN-DEPENDENT
     Dosage: 120 MCG; TID; SC;  60 MCG; BID; SC;  60 MCG; BID; SC
     Route: 058
     Dates: start: 20051012, end: 20051201
  2. SYMLIN [Suspect]
     Indication: DIABETES MELLITUS INSULIN-DEPENDENT
     Dosage: 120 MCG; TID; SC;  60 MCG; BID; SC;  60 MCG; BID; SC
     Route: 058
     Dates: start: 20051201, end: 20060401
  3. SYMLIN [Suspect]
     Indication: DIABETES MELLITUS INSULIN-DEPENDENT
     Dosage: 120 MCG; TID; SC;  60 MCG; BID; SC;  60 MCG; BID; SC
     Route: 058
     Dates: start: 20060728
  4. HUMALOG [Concomitant]
  5. INSULIN [Concomitant]

REACTIONS (6)
  - DRUG DOSE OMISSION [None]
  - DRUG THERAPY CHANGED [None]
  - DYSPNOEA [None]
  - EARLY SATIETY [None]
  - LARYNGITIS [None]
  - MALAISE [None]
